FAERS Safety Report 12957602 (Version 2)
Quarter: 2017Q4

REPORT INFORMATION
  Report Type: Spontaneous
  Country: US (occurrence: US)
  Receive Date: 20161118
  Receipt Date: 20171025
  Transmission Date: 20180320
  Serious: Yes (Hospitalization, Other)
  Sender: FDA-Public Use
  Company Number: US-INTERNATIONAL MEDICATION SYSTEMS, LIMITED-1059772

PATIENT
  Age: 51 Year
  Sex: Male
  Weight: 91.36 kg

DRUGS (1)
  1. LIDOCAINE HYDROCHLORIDE. [Suspect]
     Active Substance: LIDOCAINE HYDROCHLORIDE
     Indication: SPINAL FUSION SURGERY
     Route: 061

REACTIONS (2)
  - Foreign body in respiratory tract [Unknown]
  - Removal of foreign body [Unknown]

NARRATIVE: CASE EVENT DATE: 20161102
